FAERS Safety Report 5331729-9 (Version None)
Quarter: 2007Q2

REPORT INFORMATION
  Report Type: 
  Country: None (occurrence: None)
  Receive Date: 20070517
  Receipt Date: 20070405
  Transmission Date: 20071010
  Serious: Yes (Hospitalization)
  Sender: FDA-Public Use
  Company Number: TKT01200700186

PATIENT
  Age: 15 Year
  Sex: Male
  Weight: 44.6 kg

DRUGS (1)
  1. IDURSULFASE (IDURSULFASE) (0.5 MILLIGRAM(S) / KILOGRAM, CONCENTRATE FO [Suspect]
     Indication: MUCOPOLYSACCHARIDOSIS II
     Dosage: (23 MG, 1 IN 1 WK), INTRAVENOUS DRIP
     Route: 041
     Dates: start: 20060831

REACTIONS (11)
  - ASPIRATION [None]
  - CHILLS [None]
  - FLUSHING [None]
  - INFUSION RELATED REACTION [None]
  - NAUSEA [None]
  - PNEUMONIA [None]
  - RASH [None]
  - RASH ERYTHEMATOUS [None]
  - RASH PAPULAR [None]
  - TREMOR [None]
  - URTICARIA [None]
